FAERS Safety Report 25365889 (Version 1)
Quarter: 2025Q2

REPORT INFORMATION
  Report Type: Spontaneous
  Country: TR (occurrence: TR)
  Receive Date: 20250528
  Receipt Date: 20250528
  Transmission Date: 20250716
  Serious: Yes (Other)
  Sender: NOVO NORDISK
  Company Number: TR-NOVOPROD-1439509

PATIENT
  Age: 589 Month
  Sex: Female
  Weight: 91 kg

DRUGS (1)
  1. OZEMPIC [Suspect]
     Active Substance: SEMAGLUTIDE
     Indication: Weight decreased
     Route: 058
     Dates: start: 20250425, end: 20250503

REACTIONS (12)
  - Malaise [Unknown]
  - Oesophageal pain [Unknown]
  - Fungal infection [Unknown]
  - Cystitis [Unknown]
  - Dehydration [Unknown]
  - Near death experience [Unknown]
  - Tremor [Unknown]
  - Asthenia [Unknown]
  - Nausea [Unknown]
  - Vomiting [Unknown]
  - Off label use [Recovered/Resolved]
  - Prescription drug used without a prescription [Recovered/Resolved]

NARRATIVE: CASE EVENT DATE: 20250401
